FAERS Safety Report 4636026-2 (Version None)
Quarter: 2005Q2

REPORT INFORMATION
  Report Type: 
  Country: None (occurrence: None)
  Receive Date: 20050331
  Receipt Date: 20040421
  Transmission Date: 20051028
  Serious: Yes (Other)
  Sender: FDA-Public Use
  Company Number: 200411957BCC

PATIENT
  Age: 21 Year
  Sex: Female
  Weight: 57.1532 kg

DRUGS (1)
  1. ALEVE (CAPLET) [Suspect]
     Dosage: 440 MG, ONCE, ORAL
     Route: 048
     Dates: start: 20040421

REACTIONS (1)
  - BLOOD URINE PRESENT [None]
